FAERS Safety Report 9820292 (Version 1)
Quarter: 2013Q4

REPORT INFORMATION
  Report Type: Spontaneous
  Country: US (occurrence: None)
  Receive Date: 20131223
  Receipt Date: 20131223
  Transmission Date: 20140711
  Serious: No
  Sender: FDA-Public Use
  Company Number: 221264

PATIENT
  Age: 71 Year
  Sex: Male

DRUGS (1)
  1. PICATO [Suspect]
     Route: 061
     Dates: start: 20130410

REACTIONS (2)
  - Application site erythema [None]
  - Wrong technique in drug usage process [None]
